FAERS Safety Report 11043779 (Version 1)
Quarter: 2015Q2

REPORT INFORMATION
  Report Type: Spontaneous
  Country: HK (occurrence: HK)
  Receive Date: 20150417
  Receipt Date: 20150417
  Transmission Date: 20150821
  Serious: Yes (Death)
  Sender: FDA-Public Use
  Company Number: HK-MYLANLABS-2015M1012644

PATIENT

DRUGS (3)
  1. METFORMIN [Suspect]
     Active Substance: METFORMIN HYDROCHLORIDE
     Dosage: 50 TABLETS
     Route: 048
  2. LISINOPRIL. [Suspect]
     Active Substance: LISINOPRIL
     Dosage: 15 TABLETS
     Route: 048
  3. ADALAT 2-PHASEN [Suspect]
     Active Substance: NIFEDIPINE
     Indication: OVERDOSE
     Dosage: 70 TABLETS
     Route: 048

REACTIONS (3)
  - Overdose [Fatal]
  - Hypotension [Fatal]
  - Shock [Fatal]
